FAERS Safety Report 6650381-3 (Version None)
Quarter: 2010Q1

REPORT INFORMATION
  Report Type: 
  Country: None (occurrence: None)
  Receive Date: 20100325
  Receipt Date: 20100315
  Transmission Date: 20100710
  Serious: Yes (Other)
  Sender: FDA-Public Use
  Company Number: CHPA2010US05089

PATIENT
  Age: 59 Year
  Sex: Female
  Weight: 95.238 kg

DRUGS (3)
  1. THERAFLU DAYTIME SEVERE COLD + COUGH [Suspect]
     Indication: INFLUENZA
     Dosage: 1 DF, ONCE/SINGLE
     Route: 048
     Dates: start: 20100314, end: 20100314
  2. ADVAIR DISKUS 100/50 [Concomitant]
     Dosage: 500 MG, BID
  3. DRUG THERAPY NOS [Suspect]
     Dosage: UNK, PRN

REACTIONS (5)
  - ANAPHYLACTIC SHOCK [None]
  - CARDIAC DISCOMFORT [None]
  - HYPOAESTHESIA ORAL [None]
  - PRURITUS [None]
  - SWOLLEN TONGUE [None]
